FAERS Safety Report 8648794 (Version 2)
Quarter: 2012Q4

REPORT INFORMATION
  Report Type: 
  Country: JP (occurrence: JP)
  Receive Date: 20120703
  Receipt Date: 20120921
  Transmission Date: 20130627
  Serious: Yes (Hospitalization, Other)
  Sender: FDA-Public Use
  Company Number: JP-BRISTOL-MYERS SQUIBB COMPANY-16685125

PATIENT
  Age: 56 Year
  Sex: Male
  Weight: 60 kg

DRUGS (3)
  1. PARAPLATIN [Suspect]
     Indication: LUNG NEOPLASM MALIGNANT
     Dosage: 550mg
     Dates: start: 20120521, end: 20120521
  2. TAXOL [Suspect]
     Indication: LUNG NEOPLASM MALIGNANT
     Dates: start: 20120521, end: 20120528
  3. AVASTIN [Suspect]
     Indication: LUNG NEOPLASM MALIGNANT
     Dosage: 900mg
     Dates: start: 20120528, end: 20120528

REACTIONS (1)
  - Pneumonia [Recovering/Resolving]
